FAERS Safety Report 13897598 (Version 1)
Quarter: 2017Q3

REPORT INFORMATION
  Report Type: Spontaneous
  Country: FR (occurrence: FR)
  Receive Date: 20170823
  Receipt Date: 20170823
  Transmission Date: 20171127
  Serious: Yes (Other)
  Sender: FDA-Public Use
  Company Number: FR-PFIZER INC-2017363079

PATIENT
  Age: 85 Year
  Sex: Female

DRUGS (3)
  1. CORDARONE [Suspect]
     Active Substance: AMIODARONE HYDROCHLORIDE
     Indication: TEMPORAL ARTERITIS
     Dosage: 200 MG, DAILY
     Route: 048
     Dates: start: 20170723, end: 20170807
  2. XANAX [Concomitant]
     Active Substance: ALPRAZOLAM
     Dosage: UNK
  3. AVLOCARDYL [Concomitant]
     Active Substance: PROPRANOLOL HYDROCHLORIDE
     Dosage: UNK

REACTIONS (5)
  - Deafness [Unknown]
  - Muscular weakness [Unknown]
  - Cardiac fibrillation [Unknown]
  - Visual impairment [Unknown]
  - Cough [Unknown]
